FAERS Safety Report 5911932-7 (Version None)
Quarter: 2008Q4

REPORT INFORMATION
  Report Type: 
  Country: None (occurrence: None)
  Receive Date: 20081008
  Receipt Date: 20080929
  Transmission Date: 20090506
  Serious: Yes (Hospitalization)
  Sender: FDA-Public Use
  Company Number: PHHY2008NL23286

PATIENT
  Sex: Female
  Weight: 60 kg

DRUGS (2)
  1. RITALIN [Suspect]
     Indication: FATIGUE
     Dosage: 10 MG, TID
     Route: 048
     Dates: start: 19970601, end: 19990201
  2. RITALIN [Suspect]
     Indication: ATTENTION DEFICIT/HYPERACTIVITY DISORDER

REACTIONS (2)
  - DRUG DEPENDENCE [None]
  - INAPPROPRIATE AFFECT [None]
